FAERS Safety Report 24282370 (Version 1)
Quarter: 2024Q3

REPORT INFORMATION
  Report Type: Report from Study
  Country: CA (occurrence: CA)
  Receive Date: 20240904
  Receipt Date: 20240904
  Transmission Date: 20241017
  Serious: Yes (Death, Other)
  Sender: PFIZER
  Company Number: CA-PFIZER INC-202400249252

PATIENT
  Age: 29 Year
  Sex: Male

DRUGS (2)
  1. BEVACIZUMAB [Suspect]
     Active Substance: BEVACIZUMAB
     Indication: Glioblastoma
     Dosage: 820 MG, MONTHLY
  2. BEVACIZUMAB [Suspect]
     Active Substance: BEVACIZUMAB
     Indication: Glioblastoma
     Dosage: 10 MG/KG 1 EVERY 2 WEEKS

REACTIONS (4)
  - Death [Fatal]
  - Neoplasm progression [Fatal]
  - Pulmonary embolism [Fatal]
  - Upper respiratory tract congestion [Fatal]
